FAERS Safety Report 21278996 (Version 1)
Quarter: 2022Q3

REPORT INFORMATION
  Report Type: Spontaneous
  Country: DE (occurrence: DE)
  Receive Date: 20220901
  Receipt Date: 20220901
  Transmission Date: 20221026
  Serious: Yes (Other)
  Sender: FDA-Public Use
  Company Number: DE-MYLANLABS-2019M1081835

PATIENT
  Age: 54 Year
  Sex: Male
  Weight: 78 kg

DRUGS (22)
  1. CANDESARTAN [Suspect]
     Active Substance: CANDESARTAN
     Indication: Product used for unknown indication
     Dosage: UNK, STRENGTH : 16 MG, THERAPY START DATE AND END DATE : ASKU
  2. VALSARTAN [Suspect]
     Active Substance: VALSARTAN
     Indication: Hypertension
     Dosage: UNK, STRENGTH : 160 MG, THERAPY START DATE AND END DATE : ASKU
  3. VALSARTAN [Suspect]
     Active Substance: VALSARTAN
     Indication: Hypertension
     Dosage: 160 MILLIGRAM DAILY; 160 MILLIGRAM, QD (ONCE DAILY), STRENGTH : 160 MG, DURATION : 3 YEARS
     Dates: start: 2015, end: 201807
  4. METOPROLOL SUCCINATE [Concomitant]
     Active Substance: METOPROLOL SUCCINATE
     Indication: Product used for unknown indication
     Dosage: 1 DOSAGE FORMS DAILY; UNK, PM (1 EVENING), THERAPY START DATE AND END DATE : ASKU STRENGTH : 95 MG
  5. CALCITRIOL [Concomitant]
     Active Substance: CALCITRIOL
     Indication: Product used for unknown indication
     Dosage: 2 DOSAGE FORMS DAILY; 2 DOSAGE FORM, AM (2 IN MORNING),   STRENGTH : 0.25 MCG
  6. SERTRALINE HYDROCHLORIDE [Concomitant]
     Active Substance: SERTRALINE HYDROCHLORIDE
     Indication: Depression
     Dosage: UNK, THERAPY START DATE AND END DATE : ASKU
  7. DOXAZOSIN [Concomitant]
     Active Substance: DOXAZOSIN MESYLATE
     Indication: Product used for unknown indication
     Dosage: 2 DOSAGE FORMS DAILY; 2 DOSAGE FORM, PM (2 EVENING),  , STRENGTH: 40 MG
  8. CANDESARTAN CILEXETIL [Concomitant]
     Active Substance: CANDESARTAN CILEXETIL
     Indication: Product used for unknown indication
     Dosage: 1 DOSAGE FORMS DAILY; UNK, PM (1 EVENING), THERAPY START DATE AND END DATE : ASKU, , STRENGTH : 16 M
  9. AMLODIPIN ABZ [Concomitant]
     Indication: Product used for unknown indication
     Dosage: 1 DOSAGE FORMS DAILY; UNK UNK, HS (1 AT NOON),  , STRENGTH : 10 MG, THERAPY START DATE AND END DATE
  10. RETACRIT [Concomitant]
     Active Substance: EPOETIN ALFA-EPBX
     Indication: Product used for unknown indication
     Dosage: MONDAY AND FRIDAY, INTRAVENOUS, THERAPY START DATE AND END DATE : ASKU
     Route: 042
  11. PRAVASTATIN 1A PHARMA GMBH [Concomitant]
     Indication: Product used for unknown indication
     Dosage: 1 DOSAGE FORMS DAILY; 1 DOSAGE FORM, PM (1 EVENING), THERAPY START DATE AND END DATE : ASKU,  , STRE
  12. Nepresol [Concomitant]
     Indication: Product used for unknown indication
     Dosage: 2 DOSAGE FORMS DAILY; 2 EVENING,   STRENGTH : 50 MG, THERAPY START DATE AND END DATE : ASKU
  13. Pantoprazole micro [Concomitant]
     Indication: Product used for unknown indication
     Dosage: 2 DOSAGE FORMS DAILY; UNK, BID (1 MORNING 1 EVENING), THERAPY START DATE AND END DATE : ASKU,  STREN
  14. CPS [Concomitant]
     Indication: Product used for unknown indication
     Dosage: UP TO 8 SACHETS PER DAY TO THE MEAL, THERAPY START DATE AND END DATE : ASKU, STRENGTH : 14.9 GRAM
  15. CHOLECALCIFEROL [Concomitant]
     Active Substance: CHOLECALCIFEROL
     Indication: Product used for unknown indication
     Dosage: UNK, THERAPY START DATE AND END DATE : ASKU, STRENGTH : 20000 IU
  16. DREISAVIT N [Concomitant]
     Indication: Product used for unknown indication
     Dosage: 1 DOSAGE FORMS DAILY; UNK, PM (1 EVENING), THERAPY START DATE AND END DATE : ASKU
  17. METAMIZOLE SODIUM [Concomitant]
     Active Substance: METAMIZOLE SODIUM
     Indication: Product used for unknown indication
     Dosage: UNK, PRN, THERAPY START DATE AND END DATE : ASKU
     Route: 048
  18. ASPIRIN [Concomitant]
     Active Substance: ASPIRIN
     Indication: Product used for unknown indication
     Dosage: 1 DOSAGE FORMS DAILY; UNK UNK, AM (1 AT MORNING), THERAPY START DATE AND END DATE : ASKU, , STRENGTH
  19. RENVELA [Concomitant]
     Active Substance: SEVELAMER CARBONATE
     Indication: Product used for unknown indication
     Dosage: UNK, THERAPY START DATE AND END DATE : ASKU, STRENGTH : 800 MG
  20. RENVELA [Concomitant]
     Active Substance: SEVELAMER CARBONATE
     Dosage: 2 DOSAGE FORMS DAILY; UNK, AM (2 IN MORNING), THERAPY START DATE AND END DATE : ASKU, STRENGTH : 800
  21. SODIUM BICARBONATE [Concomitant]
     Active Substance: SODIUM BICARBONATE
     Indication: Product used for unknown indication
     Dosage: 2-0-2 SATURDAY AND SUNDAY, STRENGTH : 1 GRAM, THERAPY START DATE AND END DATE : ASKU
  22. PREDNISONE [Concomitant]
     Active Substance: PREDNISONE
     Indication: Product used for unknown indication
     Dosage: 1 DOSAGE FORMS DAILY; UNK UNK, AM (1 AT MORNING), THERAPY START DATE AND END DATE : ASKU

REACTIONS (11)
  - Chronic kidney disease [Unknown]
  - Anhedonia [Unknown]
  - Diabetes mellitus [Unknown]
  - Decreased interest [Unknown]
  - Depression [Unknown]
  - Mental impairment [Not Recovered/Not Resolved]
  - Job dissatisfaction [Unknown]
  - Anxiety disorder [Unknown]
  - Quality of life decreased [Not Recovered/Not Resolved]
  - Product contamination [Unknown]
  - Fear of disease [Not Recovered/Not Resolved]

NARRATIVE: CASE EVENT DATE: 20180101
